FAERS Safety Report 21068421 (Version 1)
Quarter: 2022Q3

REPORT INFORMATION
  Report Type: Report from Study
  Country: US (occurrence: US)
  Receive Date: 20220712
  Receipt Date: 20220712
  Transmission Date: 20221027
  Serious: Yes (Hospitalization, Other)
  Sender: FDA-Public Use
  Company Number: US-VALIDUS PHARMACEUTICALS LLC-US-VDP-2022-015614

PATIENT

DRUGS (8)
  1. METOPROLOL TARTRATE [Suspect]
     Active Substance: METOPROLOL TARTRATE
     Indication: Heart rate increased
     Dosage: UNK
     Route: 065
  2. TYVASO [Suspect]
     Active Substance: TREPROSTINIL
     Indication: Pulmonary arterial hypertension
     Dosage: UNK, INHALATION
     Route: 050
     Dates: start: 20220523
  3. TYVASO [Suspect]
     Active Substance: TREPROSTINIL
     Dosage: 18-54 ?G, QID, INHALATION
     Route: 050
     Dates: start: 202205
  4. TYVASO [Suspect]
     Active Substance: TREPROSTINIL
     Dosage: 18 MICROGRAM (PER TREATMENT), INHALATION
     Route: 050
     Dates: start: 202205, end: 20220529
  5. TYVASO [Suspect]
     Active Substance: TREPROSTINIL
     Dosage: UNK (RESUMED DOSE), INHALATION
     Route: 050
     Dates: start: 202206
  6. TYVASO [Suspect]
     Active Substance: TREPROSTINIL
     Dosage: UNK, INHALATION
     Route: 050
     Dates: start: 2022
  7. MIDODRINE HYDROCHLORIDE [Concomitant]
     Active Substance: MIDODRINE HYDROCHLORIDE
     Indication: Product used for unknown indication
     Dosage: UNK
     Route: 065
  8. ELIQUIS [Concomitant]
     Active Substance: APIXABAN
     Indication: Product used for unknown indication
     Dosage: UNK
     Route: 065

REACTIONS (20)
  - Mental status changes [Unknown]
  - Urinary tract infection [Unknown]
  - Visual impairment [Unknown]
  - Heart rate increased [Unknown]
  - Emotional disorder [Unknown]
  - Dyspnoea [Unknown]
  - Hypotension [Unknown]
  - Heart rate irregular [Unknown]
  - Depression [Unknown]
  - Loss of consciousness [Unknown]
  - Rhinorrhoea [Recovering/Resolving]
  - Chills [Recovering/Resolving]
  - Blood glucose increased [Recovered/Resolved]
  - Euphoric mood [Unknown]
  - Mood altered [Unknown]
  - Cough [Unknown]
  - Hypertension [Recovering/Resolving]
  - Diarrhoea [Unknown]
  - Headache [Recovering/Resolving]
  - Dizziness [Unknown]

NARRATIVE: CASE EVENT DATE: 20220101
